FAERS Safety Report 21560839 (Version 6)
Quarter: 2022Q4

REPORT INFORMATION
  Report Type: Report from Study
  Country: AU (occurrence: AU)
  Receive Date: 20221107
  Receipt Date: 20221221
  Transmission Date: 20230113
  Serious: Yes (Life-Threatening, Hospitalization)
  Sender: FDA-Public Use
  Company Number: AU-GILEAD-2022-0603357

PATIENT
  Sex: Female

DRUGS (45)
  1. SACITUZUMAB GOVITECAN [Suspect]
     Active Substance: SACITUZUMAB GOVITECAN
     Indication: Non-small cell lung cancer metastatic
     Dosage: 560 MG, QD
     Route: 042
     Dates: start: 20221025, end: 20221025
  2. PEMBROLIZUMAB [Suspect]
     Active Substance: PEMBROLIZUMAB
     Indication: Non-small cell lung cancer metastatic
     Dosage: 200 MG, QD
     Route: 042
     Dates: start: 20221025, end: 20221025
  3. CARBOPLATIN [Suspect]
     Active Substance: CARBOPLATIN
     Indication: Non-small cell lung cancer metastatic
     Dosage: 600 MG, QD
     Route: 042
     Dates: start: 20221025, end: 20221025
  4. POTASSIUM CHLORIDE [Concomitant]
     Active Substance: POTASSIUM CHLORIDE
     Indication: Hypokalaemia
     Dosage: 10 MMOL
     Route: 065
  5. POTASSIUM CHLORIDE [Concomitant]
     Active Substance: POTASSIUM CHLORIDE
     Indication: Supplementation therapy
     Dosage: UNK
     Route: 048
     Dates: start: 20221101, end: 20221105
  6. POTASSIUM CHLORIDE [Concomitant]
     Active Substance: POTASSIUM CHLORIDE
     Dosage: UNK
     Route: 042
     Dates: start: 20221103, end: 20221108
  7. POTASSIUM CHLORIDE [Concomitant]
     Active Substance: POTASSIUM CHLORIDE
     Dosage: UNK
     Dates: start: 20221114
  8. VENLAFAXINE HYDROCHLORIDE [Concomitant]
     Active Substance: VENLAFAXINE HYDROCHLORIDE
     Indication: Depression
     Route: 048
  9. VENLAFAXINE HYDROCHLORIDE [Concomitant]
     Active Substance: VENLAFAXINE HYDROCHLORIDE
     Route: 048
  10. VENLAFAXINE HYDROCHLORIDE [Concomitant]
     Active Substance: VENLAFAXINE HYDROCHLORIDE
     Route: 048
  11. ROSUVASTATIN [Concomitant]
     Active Substance: ROSUVASTATIN
     Indication: Hypercholesterolaemia
     Route: 048
  12. ROSUVASTATIN [Concomitant]
     Active Substance: ROSUVASTATIN
     Route: 048
  13. ROSUVASTATIN [Concomitant]
     Active Substance: ROSUVASTATIN
     Route: 048
  14. DIAZEPAM [Concomitant]
     Active Substance: DIAZEPAM
     Indication: Depression
     Route: 048
  15. DIAZEPAM [Concomitant]
     Active Substance: DIAZEPAM
     Route: 048
  16. DIAZEPAM [Concomitant]
     Active Substance: DIAZEPAM
     Route: 048
  17. PANTOPRAZOLE SODIUM [Concomitant]
     Active Substance: PANTOPRAZOLE SODIUM
     Indication: Gastrooesophageal reflux disease
     Route: 048
  18. PANTOPRAZOLE SODIUM [Concomitant]
     Active Substance: PANTOPRAZOLE SODIUM
     Route: 048
  19. PANTOPRAZOLE SODIUM [Concomitant]
     Active Substance: PANTOPRAZOLE SODIUM
     Route: 048
  20. VENTOLIN [Concomitant]
     Active Substance: ALBUTEROL SULFATE
     Indication: Emphysema
     Route: 055
  21. TRELEGY ELLIPTA [Concomitant]
     Active Substance: FLUTICASONE FUROATE\UMECLIDINIUM BROMIDE\VILANTEROL TRIFENATATE
     Indication: Emphysema
     Route: 055
  22. TRELEGY ELLIPTA [Concomitant]
     Active Substance: FLUTICASONE FUROATE\UMECLIDINIUM BROMIDE\VILANTEROL TRIFENATATE
     Route: 055
  23. TRELEGY ELLIPTA [Concomitant]
     Active Substance: FLUTICASONE FUROATE\UMECLIDINIUM BROMIDE\VILANTEROL TRIFENATATE
     Route: 055
  24. PERINDOPRIL ARGININE [Concomitant]
     Active Substance: PERINDOPRIL ARGININE
     Indication: Hypertension
     Dosage: UNK
     Route: 048
     Dates: end: 20221031
  25. VITAMIN B12 [Concomitant]
     Active Substance: CYANOCOBALAMIN
     Indication: Vitamin B12 deficiency
     Route: 030
  26. METOCLOPRAMIDE [Concomitant]
     Active Substance: METOCLOPRAMIDE
     Indication: Nausea
     Route: 048
     Dates: start: 20221028
  27. ACETAMINOPHEN [Concomitant]
     Active Substance: ACETAMINOPHEN
     Indication: Pain
     Route: 048
     Dates: start: 20221031
  28. ESOMEPRAZOLE [Concomitant]
     Active Substance: ESOMEPRAZOLE
     Indication: Gastrooesophageal reflux disease
     Dosage: UNK
     Route: 048
     Dates: start: 20221101
  29. OXYCODONE [Concomitant]
     Active Substance: OXYCODONE
     Indication: Pain
     Route: 048
     Dates: start: 20221101
  30. ONDANSETRON [Concomitant]
     Active Substance: ONDANSETRON
     Indication: Nausea
     Route: 048
     Dates: start: 20221101
  31. COMPOUND SODIUM LACTATE [CALCIUM CHLORIDE DIHYDRATE;POTASSIUM CHLORIDE [Concomitant]
     Indication: Dehydration
     Dosage: UNK
     Route: 042
     Dates: start: 20221101, end: 20221108
  32. LOPERAMIDE [Concomitant]
     Active Substance: LOPERAMIDE
     Indication: Diarrhoea
     Route: 048
     Dates: start: 20221103
  33. THIAMINE [Concomitant]
     Active Substance: THIAMINE
     Indication: Supplementation therapy
     Route: 048
     Dates: start: 20221104
  34. MAGNESIUM SULFATE [Concomitant]
     Active Substance: MAGNESIUM SULFATE
     Indication: Supplementation therapy
     Route: 042
     Dates: start: 20221104, end: 20221108
  35. SODIUM CHLORIDE [Concomitant]
     Active Substance: SODIUM CHLORIDE
     Indication: Dehydration
     Route: 042
     Dates: start: 20221104
  36. SODIUM PHOSPHATE [Concomitant]
     Active Substance: SODIUM PHOSPHATE
     Indication: Supplementation therapy
     Route: 048
     Dates: start: 20221104
  37. CODEINE [Concomitant]
     Active Substance: CODEINE
     Indication: Diarrhoea
     Route: 048
     Dates: start: 20221107, end: 20221109
  38. ENOXAPARIN [Concomitant]
     Active Substance: ENOXAPARIN
     Indication: Prophylaxis
     Route: 058
     Dates: start: 20221108
  39. ENOXAPARIN [Concomitant]
     Active Substance: ENOXAPARIN
     Route: 058
     Dates: start: 20221101, end: 20221105
  40. METHYLPREDNISOLONE [Concomitant]
     Active Substance: METHYLPREDNISOLONE
     Indication: Diarrhoea
     Route: 042
     Dates: start: 20221109
  41. TRIMETHOPRIM SULFATE [Concomitant]
     Active Substance: TRIMETHOPRIM SULFATE
     Indication: Prophylaxis
     Route: 048
     Dates: start: 20221116
  42. PICOPREP [Concomitant]
     Active Substance: ANHYDROUS CITRIC ACID\MAGNESIUM OXIDE\SODIUM PICOSULFATE
     Indication: Supplementation therapy
     Route: 048
     Dates: start: 20221114, end: 20221115
  43. GASTROGEL [ALUMINIUM HYDROXIDE GEL, DRIED;ANIMAL UNSPECIFIED;GLYCYRRHI [Concomitant]
     Indication: Gastrooesophageal reflux disease
     Route: 048
     Dates: start: 20221116
  44. MAGNESIUM ASPARTATE [Concomitant]
     Active Substance: MAGNESIUM ASPARTATE
     Indication: Supplementation therapy
     Route: 048
     Dates: start: 20221111
  45. VITAMIN B12 [Concomitant]
     Active Substance: CYANOCOBALAMIN
     Indication: Vitamin B12 deficiency
     Dosage: UNK
     Route: 030
     Dates: end: 20221031

REACTIONS (5)
  - Hypokalaemia [Recovered/Resolved]
  - Neutropenia [Recovered/Resolved]
  - Diarrhoea [Recovered/Resolved]
  - Vomiting [Recovered/Resolved]
  - Abdominal pain [Recovered/Resolved]

NARRATIVE: CASE EVENT DATE: 20221031
